FAERS Safety Report 5082596-2 (Version None)
Quarter: 2006Q3

REPORT INFORMATION
  Report Type: 
  Country: None (occurrence: None)
  Receive Date: 20060817
  Receipt Date: 20060807
  Transmission Date: 20061208
  Serious: Yes (Other)
  Sender: FDA-Public Use
  Company Number: US-SANOFI-SYNTHELABO-A03200605048

PATIENT
  Age: 57 Year
  Sex: Male

DRUGS (6)
  1. AMBIEN [Suspect]
     Indication: INSOMNIA
     Route: 048
     Dates: start: 20060330, end: 20060331
  2. ASPIRIN [Concomitant]
     Route: 048
  3. LIPITOR [Concomitant]
     Route: 048
  4. HYDROCHLOROTHIAZIDE [Concomitant]
     Route: 048
  5. ALLOPURINOL [Concomitant]
     Dosage: UNK
     Route: 048
  6. ATENOLOL [Concomitant]
     Dosage: UNK
     Route: 048

REACTIONS (3)
  - AMNESIA [None]
  - IMPAIRED DRIVING ABILITY [None]
  - ROAD TRAFFIC ACCIDENT [None]
